FAERS Safety Report 6696086-4 (Version None)
Quarter: 2010Q2

REPORT INFORMATION
  Report Type: 
  Country: None (occurrence: None)
  Receive Date: 20100426
  Receipt Date: 20100421
  Transmission Date: 20101027
  Serious: Yes (Death)
  Sender: FDA-Public Use
  Company Number: PHHY2010US24494

PATIENT
  Sex: Male
  Weight: 59 kg

DRUGS (12)
  1. EXJADE [Suspect]
     Indication: IRON OVERLOAD
     Dosage: 500 MG, QD
     Route: 048
     Dates: start: 20091009, end: 20091228
  2. EXJADE [Suspect]
     Dosage: 500 MG, PER DAY
     Route: 048
     Dates: start: 20091001
  3. VIDAZA [Concomitant]
     Indication: MYELODYSPLASTIC SYNDROME
     Dosage: 150 MG, EVERY 28 DAY
     Route: 042
     Dates: start: 20091216, end: 20100226
  4. TESTOSTERONE [Concomitant]
     Dosage: 200 MG, PER MONTH
     Route: 030
     Dates: start: 20091023, end: 20091023
  5. ARANESP [Concomitant]
     Indication: MYELODYSPLASTIC SYNDROME
     Dosage: 500 MG, PRN
     Route: 042
     Dates: start: 20080509, end: 20100301
  6. METOPROLOL TARTRATE [Concomitant]
  7. COREG [Concomitant]
  8. FOLIC ACID [Concomitant]
  9. FUROSEMIDE [Concomitant]
  10. OXYCODONE [Concomitant]
  11. PROCHLORPERAZINE [Concomitant]
  12. LOPERAMIDE [Concomitant]

REACTIONS (5)
  - ALANINE AMINOTRANSFERASE DECREASED [None]
  - CHEST PAIN [None]
  - HAEMOGLOBIN DECREASED [None]
  - MYOCARDIAL INFARCTION [None]
  - WHITE BLOOD CELL COUNT DECREASED [None]
